FAERS Safety Report 8261113 (Version 4)
Quarter: 2012Q4

REPORT INFORMATION
  Report Type: Report from Study
  Country: PL (occurrence: PL)
  Receive Date: 20111123
  Receipt Date: 20121126
  Transmission Date: 20130627
  Serious: Yes (Death, Life-Threatening, Hospitalization, Other)
  Sender: FDA-Public Use
  Company Number: PL-CELGENEUS-129-CCAZA-11101126

PATIENT
  Age: 90 Year
  Sex: Female
  Weight: 45 kg

DRUGS (2)
  1. AZACITIDINE INJECTABLE [Suspect]
     Indication: ACUTE MYELOID LEUKEMIA
     Dosage: 75 milligram/sq. meter
     Route: 058
     Dates: start: 20110921, end: 20110928
  2. AZACITIDINE INJECTABLE [Suspect]
     Dosage: 75 milligram/sq. meter
     Route: 058
     Dates: start: 20111019, end: 20111025

REACTIONS (4)
  - Pneumonia [Fatal]
  - Acute myeloid leukaemia [Not Recovered/Not Resolved]
  - General physical health deterioration [Not Recovered/Not Resolved]
  - Pneumonia [Recovered/Resolved]
